FAERS Safety Report 9070470 (Version 1)
Quarter: 2013Q1

REPORT INFORMATION
  Report Type: Report from Study
  Country: US (occurrence: US)
  Receive Date: 20130129
  Receipt Date: 20130129
  Transmission Date: 20140127
  Serious: No
  Sender: FDA-Public Use
  Company Number: US-ABBOTT-12P-163-0920082-00

PATIENT
  Age: 75 Year
  Sex: Female

DRUGS (9)
  1. HUMIRA 40 MG/0.8 ML PEN [Suspect]
     Indication: CROHN^S DISEASE
     Dosage: LOADING DOSE
  2. HUMIRA 40 MG/0.8 ML PEN [Suspect]
  3. HUMIRA 40 MG/0.8 ML PEN [Suspect]
  4. DIOVAN [Concomitant]
     Indication: HYPERTENSION
  5. PLAVIX [Concomitant]
     Indication: CEREBROVASCULAR ACCIDENT
  6. VAGIFEM [Concomitant]
     Indication: VULVOVAGINAL DRYNESS
     Dosage: UP TO 5 TIMES WEEKLY AS NEEDED
     Route: 067
  7. LORAZEPAM [Concomitant]
     Indication: INSOMNIA
     Dosage: AT NIGHT
  8. TRAMADOL [Concomitant]
     Indication: PAIN
  9. BUDESONIDE [Concomitant]
     Indication: PRODUCT USED FOR UNKNOWN INDICATION

REACTIONS (4)
  - Nervousness [Not Recovered/Not Resolved]
  - Drug administration error [Not Recovered/Not Resolved]
  - Incorrect dose administered [Not Recovered/Not Resolved]
  - Visual acuity reduced [Not Recovered/Not Resolved]
